FAERS Safety Report 4699511-3 (Version None)
Quarter: 2005Q2

REPORT INFORMATION
  Report Type: 
  Country: None (occurrence: None)
  Receive Date: 20050622
  Receipt Date: 20050617
  Transmission Date: 20051028
  Serious: Yes (Death)
  Sender: FDA-Public Use
  Company Number: 200510421BFR

PATIENT
  Age: 66 Year
  Sex: Male

DRUGS (7)
  1. CIFLOX (CIPROFLOXACIN) [Suspect]
     Indication: PROSTATITIS
     Dosage: ORAL
     Route: 048
  2. PREVISCAN [Concomitant]
  3. TAHOR [Concomitant]
  4. GLUCOPHAGE [Concomitant]
  5. DIGOXIN [Concomitant]
  6. OMIX [Concomitant]
  7. RYTHMOL [Concomitant]

REACTIONS (2)
  - ANEURYSM RUPTURED [None]
  - SUDDEN DEATH [None]
